FAERS Safety Report 5466929-0 (Version None)
Quarter: 2007Q3

REPORT INFORMATION
  Report Type: 
  Country: None (occurrence: None)
  Receive Date: 20070925
  Receipt Date: 20070914
  Transmission Date: 20080115
  Serious: Yes (Disabling)
  Sender: FDA-Public Use
  Company Number: JP-ASTRAZENECA-2006AP01863

PATIENT
  Age: 16114 Day
  Sex: Female
  Weight: 42 kg

DRUGS (9)
  1. NAROPIN [Suspect]
     Indication: EPIDURAL ANAESTHESIA
     Route: 008
     Dates: start: 20051205, end: 20051205
  2. NAROPIN [Suspect]
     Route: 008
     Dates: start: 20060105, end: 20060105
  3. NAROPIN [Suspect]
     Route: 008
     Dates: start: 20060105
  4. MAGNESIUM OXIDE [Concomitant]
     Indication: CONSTIPATION
     Route: 048
     Dates: start: 20051030
  5. ALOSENN [Concomitant]
     Indication: CONSTIPATION
     Route: 048
     Dates: start: 20051030
  6. ROHYPNOL [Concomitant]
     Indication: INSOMNIA
     Route: 048
     Dates: start: 20051220
  7. HALCION [Concomitant]
     Indication: INSOMNIA
     Route: 048
     Dates: start: 20051220
  8. MYONAL [Concomitant]
     Indication: ABDOMINAL PAIN LOWER
     Route: 048
     Dates: end: 20060419
  9. METHYCOBAL [Concomitant]
     Indication: NERVE INJURY
     Dates: start: 20060101

REACTIONS (8)
  - GAIT DISTURBANCE [None]
  - HYPOAESTHESIA [None]
  - IMPAIRED WORK ABILITY [None]
  - INSOMNIA [None]
  - MONOPLEGIA [None]
  - MUSCULAR WEAKNESS [None]
  - RADICULOPATHY [None]
  - SENSORY DISTURBANCE [None]
